FAERS Safety Report 14903415 (Version 3)
Quarter: 2018Q3

REPORT INFORMATION
  Report Type: Spontaneous
  Country: IT (occurrence: IT)
  Receive Date: 20180516
  Receipt Date: 20180713
  Transmission Date: 20181010
  Serious: Yes (Other)
  Sender: FDA-Public Use
  Company Number: IT-MYLANLABS-2018M1031904

PATIENT
  Age: 40 Year
  Sex: Female

DRUGS (9)
  1. RITONAVIR. [Suspect]
     Active Substance: RITONAVIR
     Indication: HIV INFECTION
     Dosage: 1 DF, UNK
  2. DARUNAVIR [Suspect]
     Active Substance: DARUNAVIR
     Indication: HIV INFECTION
     Dosage: 1 DF, QD
     Route: 048
  3. RITONAVIR. [Suspect]
     Active Substance: RITONAVIR
     Dosage: 1 DF, QD
     Route: 065
  4. TENOFOVIR [Suspect]
     Active Substance: TENOFOVIR
     Indication: HIV INFECTION
     Dosage: UNK
     Route: 065
  5. DARUNAVIR [Suspect]
     Active Substance: DARUNAVIR
     Dosage: 2 DF, QD
     Route: 048
  6. MARAVIROC [Suspect]
     Active Substance: MARAVIROC
     Indication: HIV INFECTION
     Dosage: UNK
     Route: 065
  7. RITONAVIR. [Suspect]
     Active Substance: RITONAVIR
     Dosage: 2 DF, QD
     Route: 065
  8. ATAZANAVIR. [Concomitant]
     Active Substance: ATAZANAVIR SULFATE
     Indication: HIV INFECTION
     Dosage: 1 UNK, UNK
  9. RITONAVIR. [Suspect]
     Active Substance: RITONAVIR
     Dosage: UNK UNK, QD

REACTIONS (5)
  - Drug ineffective [Recovered/Resolved]
  - Neurological symptom [Recovered/Resolved]
  - CSF test abnormal [Recovered/Resolved]
  - Viral load increased [Recovered/Resolved]
  - Parkinsonism [Recovered/Resolved]
